FAERS Safety Report 6860990-4 (Version None)
Quarter: 2010Q3

REPORT INFORMATION
  Report Type: 
  Country: None (occurrence: None)
  Receive Date: 20100720
  Receipt Date: 20100712
  Transmission Date: 20110219
  Serious: Yes (Other)
  Sender: FDA-Public Use
  Company Number: US-JNJFOC-20100503272

PATIENT
  Sex: Female

DRUGS (2)
  1. CHILDREN'S TYLENOL SUSPENSION [Suspect]
  2. CHILDREN'S TYLENOL SUSPENSION [Suspect]
     Indication: PRODUCT USED FOR UNKNOWN INDICATION

REACTIONS (2)
  - FEBRILE CONVULSION [None]
  - PRODUCT QUALITY ISSUE [None]
